FAERS Safety Report 21302858 (Version 1)
Quarter: 2022Q3

REPORT INFORMATION
  Report Type: Spontaneous
  Country: NO (occurrence: NO)
  Receive Date: 20220907
  Receipt Date: 20220907
  Transmission Date: 20221027
  Serious: Yes (Disabling)
  Sender: FDA-Public Use
  Company Number: NO-ORGANON-O2207NOR002156

PATIENT
  Age: 44 Year
  Sex: Female

DRUGS (4)
  1. CANDESARTAN [Suspect]
     Active Substance: CANDESARTAN
     Indication: Product used for unknown indication
     Dosage: UNK
     Route: 048
     Dates: start: 20220119
  2. HYDROCHLOROTHIAZIDE\LOSARTAN [Suspect]
     Active Substance: HYDROCHLOROTHIAZIDE\LOSARTAN
     Indication: Product used for unknown indication
     Dosage: UNK
     Route: 048
     Dates: end: 20220119
  3. COZAAR [Suspect]
     Active Substance: LOSARTAN POTASSIUM
     Indication: Hypertension
     Dosage: 50 MILLIGRAM, QD, 50 MG DAILY FOR ABOUT 20 YEARS
     Route: 048
     Dates: start: 2002, end: 20211011
  4. ASPIRIN\MAGNESIUM OXIDE [Concomitant]
     Active Substance: ASPIRIN\MAGNESIUM OXIDE
     Dosage: UNK
     Route: 048
     Dates: end: 2022

REACTIONS (6)
  - Fatigue [Recovering/Resolving]
  - Paraesthesia [Recovering/Resolving]
  - Memory impairment [Recovering/Resolving]
  - Hypoaesthesia [Recovering/Resolving]
  - Drug intolerance [Unknown]
  - Adverse event [Recovering/Resolving]
